FAERS Safety Report 9779115 (Version 1)
Quarter: 2013Q4

REPORT INFORMATION
  Report Type: Spontaneous
  Country: US (occurrence: US)
  Receive Date: 20131223
  Receipt Date: 20131223
  Transmission Date: 20140711
  Serious: No
  Sender: FDA-Public Use
  Company Number: US-ENDO PHARMACEUTICALS INC.-OPCR20130384

PATIENT
  Age: 39 Year
  Sex: Female

DRUGS (1)
  1. OPANA ER 15 MG [Suspect]
     Indication: PAIN
     Dosage: 45 MG
     Route: 048
     Dates: start: 201310, end: 201310

REACTIONS (2)
  - Medication residue present [Recovered/Resolved]
  - Drug ineffective [Recovered/Resolved]
